FAERS Safety Report 21513104 (Version 1)
Quarter: 2022Q4

REPORT INFORMATION
  Report Type: Spontaneous
  Country: US (occurrence: None)
  Receive Date: 20221026
  Receipt Date: 20221026
  Transmission Date: 20230112
  Serious: Yes (Other)
  Sender: FDA-Public Use
  Company Number: None

PATIENT
  Sex: Male

DRUGS (11)
  1. DALFAMPRIDINE [Suspect]
     Active Substance: DALFAMPRIDINE
     Indication: Multiple sclerosis
     Dosage: OTHER FREQUENCY : 1 TAB B4 BEDTIME;?TAKE BY MOUTH 1 TABLET IN THE MORNING AND 1 TABLET BEFORE BEDTIM
     Route: 048
     Dates: start: 20181003
  2. DALFAMPRIDINE [Suspect]
     Active Substance: DALFAMPRIDINE
     Dosage: OTHER FREQUENCY : 1 TAB B4 BEDTIME;?
     Route: 048
     Dates: start: 20181003
  3. BACLOFEN [Concomitant]
  4. DIAZEPAM [Concomitant]
     Active Substance: DIAZEPAM
  5. FLUOXETINE [Concomitant]
     Active Substance: FLUOXETINE HYDROCHLORIDE
  6. FOSAMAX [Concomitant]
     Active Substance: ALENDRONATE SODIUM
  7. LEVOXYL [Concomitant]
     Active Substance: LEVOTHYROXINE SODIUM
  8. LIPITOR [Concomitant]
     Active Substance: ATORVASTATIN CALCIUM
  9. MYRBETRIQ [Concomitant]
     Active Substance: MIRABEGRON
  10. TECFIDERA [Concomitant]
     Active Substance: DIMETHYL FUMARATE
  11. VITAMIN D [Concomitant]
     Active Substance: VITAMIN D NOS

REACTIONS (2)
  - Surgery [None]
  - Therapy interrupted [None]
